FAERS Safety Report 23438578 (Version 2)
Quarter: 2024Q3

REPORT INFORMATION
  Report Type: Report from Study
  Country: MX (occurrence: None)
  Receive Date: 20240124
  Receipt Date: 20240710
  Transmission Date: 20241016
  Serious: Yes (Hospitalization)
  Sender: ASTRAZENECA
  Company Number: 2024A014683

PATIENT
  Age: 886 Month
  Sex: Female
  Weight: 72 kg

DRUGS (3)
  1. TAGRISSO [Suspect]
     Active Substance: OSIMERTINIB
     Indication: Lung neoplasm malignant
     Route: 048
     Dates: start: 20231119
  2. DAPAGLIFLOZIN [Suspect]
     Active Substance: DAPAGLIFLOZIN
     Indication: Diabetes mellitus
     Route: 048
     Dates: start: 2023
  3. VITAMINS [Concomitant]
     Active Substance: VITAMINS
     Indication: Prophylaxis

REACTIONS (12)
  - Infection [Unknown]
  - Nausea [Recovering/Resolving]
  - Dizziness [Recovering/Resolving]
  - Vomiting [Recovered/Resolved]
  - Fatigue [Recovered/Resolved]
  - Muscle spasms [Recovered/Resolved]
  - Headache [Unknown]
  - Constipation [Unknown]
  - Bone demineralisation [Unknown]
  - Diarrhoea [Unknown]
  - Therapeutic response unexpected [Unknown]
  - Off label use [Unknown]

NARRATIVE: CASE EVENT DATE: 20230101
